FAERS Safety Report 4637180-9 (Version None)
Quarter: 2005Q2

REPORT INFORMATION
  Report Type: 
  Country: None (occurrence: None)
  Receive Date: 20050325
  Receipt Date: 20041122
  Transmission Date: 20051028
  Serious: No
  Sender: FDA-Public Use
  Company Number: USA040979279

PATIENT
  Age: 57 Year
  Sex: Female

DRUGS (7)
  1. FORTEO [Suspect]
     Indication: OSTEOPOROSIS
     Dosage: 20 UG DAY
     Dates: start: 20040923
  2. CLIMARA [Concomitant]
  3. CIPRO [Concomitant]
  4. NYSTATIN [Concomitant]
  5. PREVACID [Concomitant]
  6. CALCIUM GLUCONATE [Concomitant]
  7. OSCAL (CALCIUM CARBONATE) [Concomitant]

REACTIONS (11)
  - ASTHENIA [None]
  - BREAST SWELLING [None]
  - BREAST TENDERNESS [None]
  - CARDIAC DISORDER [None]
  - CHEST PAIN [None]
  - FATIGUE [None]
  - FEELING ABNORMAL [None]
  - HEART RATE INCREASED [None]
  - HYPERTROPHY BREAST [None]
  - INJECTION SITE ERYTHEMA [None]
  - NAUSEA [None]
